FAERS Safety Report 15586572 (Version 1)
Quarter: 2018Q4

REPORT INFORMATION
  Report Type: Report from Study
  Country: None (occurrence: FR)
  Receive Date: 20181105
  Receipt Date: 20181105
  Transmission Date: 20190205
  Serious: Yes (Hospitalization)
  Sender: FDA-Public Use
  Company Number: FR-BIOVITRUM-2018FR1020

PATIENT
  Age: 1 Year
  Sex: Male

DRUGS (3)
  1. ORFADIN [Suspect]
     Active Substance: NITISINONE
     Dates: start: 20170920
  2. ORFADIN [Suspect]
     Active Substance: NITISINONE
     Indication: TYROSINAEMIA
     Dates: start: 20160919, end: 20170920
  3. ORFADIN [Suspect]
     Active Substance: NITISINONE
     Route: 048
     Dates: start: 20151026, end: 20151116

REACTIONS (3)
  - Hepatomegaly [Recovered/Resolved]
  - Amino acid level decreased [Unknown]
  - Lymphadenopathy [Recovered/Resolved]

NARRATIVE: CASE EVENT DATE: 201612
